FAERS Safety Report 7069551-8 (Version None)
Quarter: 2010Q4

REPORT INFORMATION
  Report Type: 
  Country: None (occurrence: None)
  Receive Date: 20101028
  Receipt Date: 20100409
  Transmission Date: 20110411
  Serious: Yes (Hospitalization)
  Sender: FDA-Public Use
  Company Number: US-WYE-H13930910

PATIENT
  Age: 34 Year
  Sex: Female
  Weight: 53.57 kg

DRUGS (8)
  1. PROTONIX [Suspect]
     Indication: GASTROOESOPHAGEAL REFLUX DISEASE
     Route: 048
     Dates: start: 20100222, end: 20100302
  2. PROTONIX [Suspect]
     Indication: ABDOMINAL PAIN
  3. PROTONIX [Suspect]
     Dosage: 1 DOSE EVERY 1 TOT
     Route: 042
     Dates: start: 20100201, end: 20100201
  4. PROTONIX [Suspect]
  5. CLARITIN-D [Concomitant]
     Indication: RHINITIS ALLERGIC
     Dosage: ONE TWICE DAILY AS NEEDED
  6. PROAIR HFA [Concomitant]
     Indication: ASTHMA
     Dosage: 2 PUFFS EVERY FOUR HOURS AS NEEDED
     Route: 055
  7. ALDACTONE [Concomitant]
     Indication: POLYCYSTIC OVARIES
     Route: 048
  8. YAZ [Concomitant]
     Route: 048

REACTIONS (1)
  - URTICARIA [None]
